FAERS Safety Report 5949394-6 (Version None)
Quarter: 2008Q4

REPORT INFORMATION
  Report Type: 
  Country: None (occurrence: None)
  Receive Date: 20081112
  Receipt Date: 20081030
  Transmission Date: 20090506
  Serious: Yes (Other)
  Sender: FDA-Public Use
  Company Number: PHHY2008GB24660

PATIENT
  Sex: Female
  Weight: 63 kg

DRUGS (9)
  1. NEORAL [Suspect]
     Indication: APLASTIC ANAEMIA
     Dosage: 150 MG, BID
     Dates: start: 20071114
  2. NEORAL [Suspect]
     Dosage: 200 MG, BID
  3. ACETAMINOPHEN W/ CODEINE [Concomitant]
     Indication: MIGRAINE
     Dosage: 2 TABLETS QDS PRN
     Route: 048
     Dates: start: 20061117
  4. AMITRIPTYLINE HCL [Concomitant]
     Indication: MIGRAINE
     Dosage: 1-2 TABLETS ON
     Route: 048
  5. CIPROFLOXACIN [Concomitant]
     Indication: URINARY TRACT INFECTION
     Dosage: 500 MG, BID
     Route: 048
     Dates: start: 20081020
  6. BETNESOL [Concomitant]
     Dosage: TWICE WEEKLY
     Route: 061
     Dates: start: 20081020
  7. NORETHINDRONE ACETATE [Concomitant]
     Indication: MENORRHAGIA
     Dosage: 5 MG, TID
     Route: 048
     Dates: start: 20071024, end: 20080101
  8. NORETHINDRONE ACETATE [Concomitant]
     Dosage: UNK
     Dates: start: 20080221
  9. BUSERELIN [Concomitant]
     Dosage: 1 SPRAY BN TDS
     Dates: start: 20080125, end: 20080221

REACTIONS (7)
  - ACNE [None]
  - ACUTE GENERALISED EXANTHEMATOUS PUSTULOSIS [None]
  - ALOPECIA [None]
  - GINGIVAL HYPERPLASIA [None]
  - INFLAMMATION [None]
  - MUSCLE SPASMS [None]
  - RASH [None]
